FAERS Safety Report 8329422-3 (Version None)
Quarter: 2012Q2

REPORT INFORMATION
  Report Type: 
  Country: None (occurrence: None)
  Receive Date: 20120502
  Receipt Date: 20120418
  Transmission Date: 20120825
  Serious: Yes (Other)
  Sender: FDA-Public Use
  Company Number: ES-ROCHE-1064545

PATIENT
  Age: 12 Year
  Sex: Male

DRUGS (1)
  1. SOMATROPIN RDNA [Suspect]
     Indication: HYPOPITUITARISM
     Dosage: CONCENTRATION: 10 MG/2 ML
     Dates: start: 20111007, end: 20120210

REACTIONS (1)
  - MEDULLOBLASTOMA [None]
